FAERS Safety Report 4560770-9 (Version None)
Quarter: 2005Q1

REPORT INFORMATION
  Report Type: 
  Country: None (occurrence: None)
  Receive Date: 20050126
  Receipt Date: 20040331
  Transmission Date: 20050727
  Serious: Yes (Other)
  Sender: FDA-Public Use
  Company Number: US-SOLVAY-00204001579

PATIENT
  Sex: Female
  Weight: 61.5 kg

DRUGS (4)
  1. ESTRATEST [Suspect]
     Indication: HOT FLUSH
     Dosage: DAILY DOSE: UNK.
     Route: 048
  2. PREMPRO [Suspect]
     Indication: HOT FLUSH
     Dosage: DAILY DOSE: UNK.
     Route: 048
     Dates: end: 20010901
  3. PREMARIN [Suspect]
     Indication: HOT FLUSH
     Dosage: DAILY DOSE: UNK.
     Route: 048
  4. MPA (GENERIC) [Suspect]
     Indication: HOT FLUSH
     Dosage: DAILY DOSE: UNK.
     Route: 048
     Dates: end: 20010901

REACTIONS (3)
  - BREAST CANCER [None]
  - LYMPHOEDEMA [None]
  - METASTATIC NEOPLASM [None]
